FAERS Safety Report 6238993-2 (Version None)
Quarter: 2009Q2

REPORT INFORMATION
  Report Type: 
  Country: None (occurrence: None)
  Receive Date: 20090622
  Receipt Date: 20090617
  Transmission Date: 20091009
  Serious: Yes (Hospitalization)
  Sender: FDA-Public Use
  Company Number: B0404803A

PATIENT
  Sex: Male

DRUGS (9)
  1. EPIVIR [Suspect]
     Indication: HIV INFECTION
     Dosage: 150MG TWICE PER DAY
     Route: 048
     Dates: start: 19990622
  2. ZIAGEN [Suspect]
     Indication: HIV INFECTION
     Dosage: 300MG TWICE PER DAY
     Route: 048
     Dates: start: 20040820, end: 20051011
  3. VIRAMUNE [Suspect]
     Indication: HIV INFECTION
     Route: 048
     Dates: start: 19990629, end: 20051004
  4. ZERIT [Concomitant]
     Indication: HIV INFECTION
     Dosage: 40MG TWICE PER DAY
     Route: 048
     Dates: start: 19990622, end: 20040819
  5. NORVIR [Concomitant]
     Indication: HIV INFECTION
     Route: 048
     Dates: start: 20061129
  6. REYATAZ [Concomitant]
     Indication: HIV INFECTION
     Route: 048
     Dates: start: 20061129
  7. EPZICOM [Concomitant]
     Indication: HIV INFECTION
     Route: 048
     Dates: start: 20061129
  8. LOPEMIN [Concomitant]
     Dosage: 1MG PER DAY
     Route: 048
     Dates: start: 20061213, end: 20070117
  9. NAUZELIN [Concomitant]
     Indication: NAUSEA
     Route: 065
     Dates: start: 20061213, end: 20070117

REACTIONS (3)
  - CARDIAC MURMUR [None]
  - FATIGUE [None]
  - HYPERHIDROSIS [None]
